FAERS Safety Report 22661532 (Version 1)
Quarter: 2023Q2

REPORT INFORMATION
  Report Type: Spontaneous
  Country: None (occurrence: RO)
  Receive Date: 20230630
  Receipt Date: 20230630
  Transmission Date: 20230721
  Serious: Yes (Other)
  Sender: FDA-Public Use
  Company Number: RO-Harrow Eye-2143297

PATIENT
  Age: 58 Year
  Sex: Female

DRUGS (1)
  1. MAXIDEX [Suspect]
     Active Substance: DEXAMETHASONE
     Route: 047
     Dates: start: 2022, end: 2023

REACTIONS (4)
  - Hepatic pain [Unknown]
  - Burning sensation [Unknown]
  - Syncope [Not Recovered/Not Resolved]
  - Liver disorder [Not Recovered/Not Resolved]
